FAERS Safety Report 8258312-X (Version None)
Quarter: 2012Q2

REPORT INFORMATION
  Report Type: 
  Country: None (occurrence: None)
  Receive Date: 20120404
  Receipt Date: 20120323
  Transmission Date: 20120825
  Serious: Yes (Hospitalization, Other)
  Sender: FDA-Public Use
  Company Number: US-SANOFI-AVENTIS-2012SA020519

PATIENT
  Sex: Female
  Weight: 59.87 kg

DRUGS (7)
  1. THYROID THERAPY [Concomitant]
  2. ANALGESICS [Concomitant]
     Indication: BACK PAIN
  3. ALL OTHER THERAPEUTIC PRODUCTS [Concomitant]
     Indication: PROPHYLAXIS
  4. ALL OTHER THERAPEUTIC PRODUCTS [Concomitant]
     Indication: BACK PAIN
  5. PLAVIX [Suspect]
     Route: 048
  6. ANTIHYPERTENSIVES [Concomitant]
  7. HERBAL PREPARATION [Concomitant]

REACTIONS (15)
  - FATIGUE [None]
  - BACK INJURY [None]
  - BLOOD CREATININE INCREASED [None]
  - CORONARY ARTERY OCCLUSION [None]
  - COLITIS ULCERATIVE [None]
  - INCORRECT PRODUCT STORAGE [None]
  - URINE OUTPUT DECREASED [None]
  - DYSPNOEA [None]
  - RENAL FAILURE [None]
  - BLOOD UREA INCREASED [None]
  - ABDOMINAL PAIN UPPER [None]
  - CHEST PAIN [None]
  - GASTROOESOPHAGEAL REFLUX DISEASE [None]
  - FLUID INTAKE REDUCED [None]
  - BACK PAIN [None]
